FAERS Safety Report 20195780 (Version 1)
Quarter: 2021Q4

REPORT INFORMATION
  Report Type: Spontaneous
  Country: CL (occurrence: CL)
  Receive Date: 20211216
  Receipt Date: 20211216
  Transmission Date: 20220303
  Serious: Yes (Hospitalization, Other)
  Sender: FDA-Public Use
  Company Number: CL-MYLANLABS-2021M1092339

PATIENT
  Sex: Male

DRUGS (1)
  1. CLOZAPINE [Suspect]
     Active Substance: CLOZAPINE
     Indication: Schizoaffective disorder
     Dosage: 25 MILLIGRAM, QD
     Route: 048
     Dates: start: 20120730

REACTIONS (10)
  - Psychotic disorder [Recovering/Resolving]
  - Depressive symptom [Recovering/Resolving]
  - Delusion [Recovered/Resolved]
  - Insomnia [Recovered/Resolved]
  - Euphoric mood [Recovering/Resolving]
  - Anxiety [Not Recovered/Not Resolved]
  - Psychomotor hyperactivity [Recovering/Resolving]
  - Irritability [Recovering/Resolving]
  - Somnolence [Not Recovered/Not Resolved]
  - Off label use [Unknown]

NARRATIVE: CASE EVENT DATE: 20210101
